FAERS Safety Report 23842991 (Version 2)
Quarter: 2024Q2

REPORT INFORMATION
  Report Type: Report from Study
  Country: US (occurrence: None)
  Receive Date: 20240510
  Receipt Date: 20240528
  Transmission Date: 20240715
  Serious: Yes (Other)
  Sender: FDA-Public Use
  Company Number: 2024A106199

PATIENT
  Sex: Male

DRUGS (1)
  1. FASENRA [Suspect]
     Active Substance: BENRALIZUMAB
     Indication: Eosinophilic oesophagitis
     Route: 058

REACTIONS (10)
  - Shock [Unknown]
  - Hypervolaemia [Unknown]
  - Drug dose omission by device [Unknown]
  - Product used for unknown indication [Unknown]
  - Condition aggravated [Unknown]
  - White blood cell count increased [Unknown]
  - Cough [Unknown]
  - Incorrect dose administered by device [Unknown]
  - Symptom recurrence [Unknown]
  - Product dose omission issue [Unknown]
